FAERS Safety Report 8386622-4 (Version None)
Quarter: 2012Q2

REPORT INFORMATION
  Report Type: 
  Country: None (occurrence: None)
  Receive Date: 20120525
  Receipt Date: 20120425
  Transmission Date: 20120825
  Serious: No
  Sender: FDA-Public Use
  Company Number: US-GLAXOSMITHKLINE-A0975149A

PATIENT
  Sex: Female

DRUGS (2)
  1. VERAMYST [Suspect]
     Route: 055
  2. NASAL SALINE [Suspect]
     Route: 045

REACTIONS (2)
  - ARTHRITIS [None]
  - HYPOAESTHESIA [None]
